FAERS Safety Report 13710004 (Version 2)
Quarter: 2017Q3

REPORT INFORMATION
  Report Type: Report from Study
  Country: KR (occurrence: KR)
  Receive Date: 20170703
  Receipt Date: 20170727
  Transmission Date: 20171127
  Serious: Yes (Hospitalization)
  Sender: FDA-Public Use
  Company Number: KR-TAKEDA-2017MPI005667

PATIENT
  Age: 84 Year
  Sex: Male

DRUGS (43)
  1. IXAZOMIB [Suspect]
     Active Substance: IXAZOMIB
     Dosage: 3 MG, UNK
     Route: 048
     Dates: start: 20170612, end: 20170619
  2. SEPTRIN [Concomitant]
     Active Substance: SULFAMETHOXAZOLE\TRIMETHOPRIM
     Dosage: UNK, QD
     Route: 048
     Dates: start: 20170612
  3. PANORIN [Concomitant]
     Indication: PROPHYLAXIS
     Dosage: 30 MG, UNK
     Route: 042
     Dates: start: 20170612
  4. ARESTAL [Concomitant]
     Active Substance: LOPERAMIDE OXIDE
     Indication: DIARRHOEA
     Dosage: 1 MG, BID
     Route: 048
     Dates: start: 20170605, end: 20170611
  5. ARESTAL [Concomitant]
     Active Substance: LOPERAMIDE OXIDE
     Dosage: 1 MG, BID
     Route: 048
     Dates: start: 20170627, end: 20170706
  6. MAGNESIUM [Concomitant]
     Active Substance: MAGNESIUM
     Indication: HYPOMAGNESAEMIA
     Dosage: 4 G, UNK
     Route: 042
     Dates: start: 20170529
  7. SEPTRIN [Concomitant]
     Active Substance: SULFAMETHOXAZOLE\TRIMETHOPRIM
     Dosage: UNK
     Route: 048
     Dates: start: 20170610, end: 20170611
  8. Q-ZYME [Concomitant]
     Indication: PROPHYLAXIS
     Dosage: UNK UNK, TID
     Route: 048
     Dates: start: 20170605
  9. AMODIPIN [Concomitant]
     Indication: HYPERTENSION
     Dosage: 5 MG, QD
     Route: 048
     Dates: start: 20150430, end: 20170605
  10. SMECTA [Concomitant]
     Active Substance: MONTMORILLONITE
     Indication: PROPHYLAXIS AGAINST DIARRHOEA
     Dosage: 3 MG, QD
     Route: 048
     Dates: start: 20170530, end: 20170530
  11. NEURONTIN [Concomitant]
     Active Substance: GABAPENTIN
     Dosage: 600 MG, TID
     Route: 048
     Dates: start: 20170715, end: 20170717
  12. DIOVAN [Concomitant]
     Active Substance: VALSARTAN
     Indication: HYPERTENSION
     Dosage: 40 MG, QD
     Route: 048
     Dates: start: 20170612
  13. SMECTA [Concomitant]
     Active Substance: MONTMORILLONITE
     Dosage: 3 G, TID
     Route: 048
     Dates: start: 20170704
  14. TYLENOL ER [Concomitant]
     Active Substance: ACETAMINOPHEN
     Indication: PROPHYLAXIS
     Dosage: 650 MG, TID
     Route: 048
     Dates: start: 20170531, end: 20170531
  15. DEXAMETHASONE. [Suspect]
     Active Substance: DEXAMETHASONE
     Indication: PLASMA CELL MYELOMA
     Dosage: 20 MG, UNK
     Route: 048
     Dates: start: 20170313, end: 20170619
  16. HINECHOL [Concomitant]
     Indication: BENIGN PROSTATIC HYPERPLASIA
     Dosage: 25 MG, TID
     Route: 048
     Dates: start: 20170530
  17. SEPTRIN [Concomitant]
     Active Substance: SULFAMETHOXAZOLE\TRIMETHOPRIM
     Indication: PROPHYLAXIS
     Dosage: UNK, QD
     Route: 048
     Dates: start: 20170518, end: 20170601
  18. ALVERIX [Concomitant]
     Indication: PROPHYLAXIS
     Dosage: UNK UNK, TID
     Route: 048
     Dates: start: 20170605, end: 20170704
  19. ARESTAL [Concomitant]
     Active Substance: LOPERAMIDE OXIDE
     Dosage: 2 MG, BID
     Route: 048
     Dates: start: 20170612, end: 20170627
  20. ARESTAL [Concomitant]
     Active Substance: LOPERAMIDE OXIDE
     Dosage: 2 MG, TID
     Route: 048
     Dates: start: 20170719
  21. SMECTA [Concomitant]
     Active Substance: MONTMORILLONITE
     Indication: DIARRHOEA
     Dosage: 3 G, QD
     Route: 048
     Dates: start: 20170601, end: 20170604
  22. TAMIPOOL [Concomitant]
     Active Substance: VITAMINS
     Indication: PROPHYLAXIS
     Dosage: UNK UNK, QD
     Route: 042
     Dates: start: 20170612, end: 20170612
  23. TAMIPOOL [Concomitant]
     Active Substance: VITAMINS
     Dosage: UNK UNK, QD
     Route: 042
     Dates: start: 20170626, end: 20170703
  24. NEURONTIN [Concomitant]
     Active Substance: GABAPENTIN
     Dosage: 600 MG, QD
     Route: 048
     Dates: start: 20170705, end: 20170714
  25. NEURONTIN [Concomitant]
     Active Substance: GABAPENTIN
     Dosage: 1200 MG, BID
     Route: 048
     Dates: start: 20170718
  26. TIROPA [Concomitant]
     Active Substance: TIROPRAMIDE
     Indication: PROPHYLAXIS
     Dosage: 100 MG, TID
     Route: 048
     Dates: start: 20170424, end: 20170704
  27. ARESTAL [Concomitant]
     Active Substance: LOPERAMIDE OXIDE
     Dosage: 2 MG, BID
     Route: 048
     Dates: start: 20170707, end: 20170718
  28. LENALIDOMIDE [Suspect]
     Active Substance: LENALIDOMIDE
     Indication: PLASMA CELL MYELOMA
     Dosage: 10 MG, UNK
     Route: 048
     Dates: start: 20170313, end: 20170625
  29. RENALMIN [Concomitant]
     Indication: CHRONIC KIDNEY DISEASE
     Dosage: 103.2 MG, QD
     Route: 048
     Dates: start: 20151230
  30. METADATE [Concomitant]
     Active Substance: METHYLPHENIDATE HYDROCHLORIDE
     Indication: PROPHYLAXIS
     Dosage: 10 MG, QD
     Route: 048
     Dates: start: 20170523
  31. MEDILAC DS [Concomitant]
     Dosage: 62.5 MG, TID
     Route: 048
     Dates: start: 20170612
  32. TANTUM                             /00052302/ [Concomitant]
     Indication: PROPHYLAXIS
     Dosage: 20 ML, UNK
     Route: 048
     Dates: start: 20170522, end: 20170531
  33. ENTELON [Concomitant]
     Indication: PROPHYLAXIS
     Dosage: 150 MG, BID
     Route: 048
     Dates: start: 20170530
  34. IXAZOMIB [Suspect]
     Active Substance: IXAZOMIB
     Indication: PLASMA CELL MYELOMA
     Dosage: 4 MG, UNK
     Route: 048
     Dates: start: 20170313
  35. DICAMAX [Concomitant]
     Indication: PROPHYLAXIS
     Dosage: UNK UNK, QD
     Route: 048
     Dates: start: 20170505
  36. FEROBA U [Concomitant]
     Indication: CHRONIC KIDNEY DISEASE
     Dosage: 256 MG, QD
     Route: 048
     Dates: start: 20150504
  37. ASPIRIN                            /00002701/ [Concomitant]
     Active Substance: ASPIRIN
     Indication: PROPHYLAXIS
     Dosage: 100 MG, QD
     Route: 048
     Dates: start: 20170313
  38. NEURONTIN [Concomitant]
     Active Substance: GABAPENTIN
     Indication: PERIPHERAL SENSORY NEUROPATHY
     Dosage: 600 MG, BID
     Route: 048
     Dates: start: 20170522, end: 20170704
  39. NEURONTIN [Concomitant]
     Active Substance: GABAPENTIN
     Dosage: 300 MG, BID
     Route: 048
     Dates: start: 20170705, end: 20170714
  40. XATRAL [Concomitant]
     Active Substance: ALFUZOSIN
     Indication: BENIGN PROSTATIC HYPERPLASIA
     Dosage: 10 MG, QD
     Route: 048
     Dates: start: 20170521
  41. MEDILAC DS [Concomitant]
     Indication: PROPHYLAXIS AGAINST DIARRHOEA
     Dosage: 62.5 MG, TID
     Route: 048
     Dates: start: 20170524, end: 20170611
  42. NORZYME [Concomitant]
     Indication: PROPHYLAXIS
     Dosage: 457.7 MG, TID
     Route: 048
     Dates: start: 20170502, end: 20170605
  43. CEFTRIAXONE. [Concomitant]
     Active Substance: CEFTRIAXONE
     Indication: PROPHYLAXIS
     Dosage: 2 G, QD
     Route: 042
     Dates: start: 20170527, end: 20170601

REACTIONS (1)
  - Asthenia [Recovered/Resolved with Sequelae]

NARRATIVE: CASE EVENT DATE: 20170622
